FAERS Safety Report 5012161-4 (Version None)
Quarter: 2006Q2

REPORT INFORMATION
  Report Type: 
  Country: None (occurrence: None)
  Receive Date: 20060524
  Receipt Date: 20060505
  Transmission Date: 20061013
  Serious: Yes (Other)
  Sender: FDA-Public Use
  Company Number: CIO06006996

PATIENT
  Sex: Female

DRUGS (2)
  1. CREST PRO-HEALTH TOOTHPASTE, CLEAN MINT FLAVOR(SODIUM POLYPHOSPHATE 13 [Suspect]
     Dosage: 1 APPLIC, 1 ONLY FOR 1 DAY, INTRAORAL
     Dates: start: 20060505, end: 20060505
  2. SYNTHROID [Concomitant]

REACTIONS (13)
  - ASTHENIA [None]
  - DIZZINESS [None]
  - FEAR [None]
  - FEELING HOT [None]
  - LIP DISORDER [None]
  - NAUSEA [None]
  - ORAL DISCOMFORT [None]
  - PHARYNGEAL OEDEMA [None]
  - RASH GENERALISED [None]
  - SPEECH DISORDER [None]
  - SWELLING FACE [None]
  - SWOLLEN TONGUE [None]
  - VOMITING [None]
